FAERS Safety Report 15145777 (Version 1)
Quarter: 2018Q3

REPORT INFORMATION
  Report Type: Spontaneous
  Country: CN (occurrence: CN)
  Receive Date: 20180714
  Receipt Date: 20180714
  Transmission Date: 20181010
  Serious: Yes (Hospitalization)
  Sender: FDA-Public Use
  Company Number: CN-JNJFOC-20180706453

PATIENT
  Age: 0 Year
  Sex: Male
  Weight: 1.25 kg

DRUGS (2)
  1. MOTRIN INFANTS [Suspect]
     Active Substance: IBUPROFEN
     Route: 045
  2. MOTRIN INFANTS [Suspect]
     Active Substance: IBUPROFEN
     Indication: PRODUCT USED FOR UNKNOWN INDICATION
     Route: 045
     Dates: start: 20180422, end: 20180423

REACTIONS (10)
  - Abdominal distension [None]
  - Activated partial thromboplastin time prolonged [Recovering/Resolving]
  - Blood fibrinogen decreased [Recovering/Resolving]
  - Coagulopathy [Recovering/Resolving]
  - Prothrombin time prolonged [Recovering/Resolving]
  - Product use in unapproved indication [Unknown]
  - Haematochezia [Recovering/Resolving]
  - Off label use [Unknown]
  - Gastrointestinal haemorrhage [Recovering/Resolving]
  - Thrombin time prolonged [Recovering/Resolving]

NARRATIVE: CASE EVENT DATE: 201804
